FAERS Safety Report 6020880-6 (Version None)
Quarter: 2008Q4

REPORT INFORMATION
  Report Type: 
  Country: None (occurrence: None)
  Receive Date: 20081229
  Receipt Date: 20081219
  Transmission Date: 20090506
  Serious: Yes (Hospitalization, Disabling)
  Sender: FDA-Public Use
  Company Number: JP-BAYER-200813038BYL

PATIENT
  Age: 80 Year
  Sex: Male
  Weight: 49 kg

DRUGS (1)
  1. NEXAVAR [Suspect]
     Indication: RENAL CELL CARCINOMA STAGE IV
     Dosage: TOTAL DAILY DOSE: 800 MG  UNIT DOSE: 200 MG
     Route: 048
     Dates: start: 20081029, end: 20081113

REACTIONS (3)
  - CEREBRAL INFARCTION [None]
  - DRUG ERUPTION [None]
  - PLATELET COUNT DECREASED [None]
